FAERS Safety Report 7027377-5 (Version None)
Quarter: 2010Q4

REPORT INFORMATION
  Report Type: 
  Country: None (occurrence: None)
  Receive Date: 20101004
  Receipt Date: 20100930
  Transmission Date: 20110411
  Serious: Yes (Death, Life-Threatening, Hospitalization)
  Sender: FDA-Public Use
  Company Number: PHHO2010DE04839

PATIENT
  Sex: Male
  Weight: 90 kg

DRUGS (4)
  1. SIMULECT [Suspect]
     Indication: LIVER TRANSPLANT
     Dosage: 20 MG/DAY
     Route: 042
     Dates: start: 20080524
  2. CYCLOSPORINE [Suspect]
     Indication: LIVER TRANSPLANT
     Route: 048
  3. NO TREATMENT RECEIVED NOMED [Suspect]
     Indication: LIVER TRANSPLANT
     Route: 048
  4. TACROLIMUS [Concomitant]
     Indication: LIVER TRANSPLANT
     Dosage: 4 MG
     Dates: start: 20080524

REACTIONS (16)
  - ASCITES [None]
  - ENDOTRACHEAL INTUBATION [None]
  - ENTEROBACTER SEPSIS [None]
  - ENTEROCOCCAL INFECTION [None]
  - ENTEROCOCCAL SEPSIS [None]
  - GRAFT HAEMORRHAGE [None]
  - GRAFT LOSS [None]
  - PNEUMONIA [None]
  - PORTAL SHUNT [None]
  - RENAL FAILURE ACUTE [None]
  - RESPIRATORY FAILURE [None]
  - SHOCK [None]
  - STAPHYLOCOCCAL SEPSIS [None]
  - SURGERY [None]
  - VASCULAR GRAFT COMPLICATION [None]
  - VENA CAVA THROMBOSIS [None]
